FAERS Safety Report 8958198 (Version 2)
Quarter: 2016Q4

REPORT INFORMATION
  Report Type: Report from Study
  Country: US (occurrence: US)
  Receive Date: 20121211
  Receipt Date: 20161227
  Transmission Date: 20170207
  Serious: Yes (Hospitalization)
  Sender: FDA-Public Use
  Company Number: PHEH2012US024254

PATIENT
  Sex: Female

DRUGS (1)
  1. GILENYA [Suspect]
     Active Substance: FINGOLIMOD HYDROCHLORIDE
     Indication: MULTIPLE SCLEROSIS
     Dosage: 0.5 MG, QD
     Route: 048
     Dates: start: 20110705

REACTIONS (7)
  - Confusional state [Unknown]
  - Bronchitis [Recovered/Resolved]
  - Cognitive disorder [Unknown]
  - Memory impairment [Unknown]
  - Immunodeficiency [Recovered/Resolved]
  - Pneumonia [Recovered/Resolved]
  - Hypoacusis [Unknown]
